FAERS Safety Report 5427861-1 (Version None)
Quarter: 2007Q3

REPORT INFORMATION
  Report Type: 
  Country: None (occurrence: None)
  Receive Date: 20070828
  Receipt Date: 20070816
  Transmission Date: 20080115
  Serious: Yes (Other)
  Sender: FDA-Public Use
  Company Number: US-PFIZER INC-2007069094

PATIENT
  Sex: Male
  Weight: 81.818 kg

DRUGS (3)
  1. CHANTIX [Suspect]
     Indication: SMOKING CESSATION THERAPY
     Dates: start: 20070719, end: 20070801
  2. METFORMIN HCL [Concomitant]
  3. PRILOSEC [Concomitant]

REACTIONS (5)
  - COMMUNICATION DISORDER [None]
  - DEMENTIA [None]
  - PARKINSON'S DISEASE [None]
  - SOMNOLENCE [None]
  - UNRESPONSIVE TO STIMULI [None]
